FAERS Safety Report 11630445 (Version 1)
Quarter: 2015Q4

REPORT INFORMATION
  Report Type: Spontaneous
  Country: FR (occurrence: FR)
  Receive Date: 20151014
  Receipt Date: 20151014
  Transmission Date: 20160304
  Serious: Yes (Death, Hospitalization, Other)
  Sender: FDA-Public Use
  Company Number: FR-009507513-1508FRA003760

PATIENT
  Age: 67 Year
  Sex: Male

DRUGS (2)
  1. FIDAXOMICIN [Suspect]
     Active Substance: FIDAXOMICIN
     Indication: CLOSTRIDIUM DIFFICILE COLITIS
     Dosage: 200 MG, BID
     Route: 048
     Dates: start: 20150715, end: 20150722
  2. ZELITREX [Suspect]
     Active Substance: VALACYCLOVIR HYDROCHLORIDE
     Indication: SKIN LESION
     Dosage: 1 G, BID
     Route: 048
     Dates: start: 20150715, end: 20150722

REACTIONS (3)
  - White blood cell count decreased [Recovering/Resolving]
  - Histiocytosis haematophagic [Fatal]
  - Agranulocytosis [Recovering/Resolving]

NARRATIVE: CASE EVENT DATE: 20150722
